FAERS Safety Report 9191990 (Version 3)
Quarter: 2014Q4

REPORT INFORMATION
  Report Type: Report from Study
  Country: US (occurrence: US)
  Receive Date: 20130327
  Receipt Date: 20141209
  Transmission Date: 20150529
  Serious: Yes (Other)
  Sender: FDA-Public Use
  Company Number: US-009507513-1303USA012482

PATIENT

DRUGS (4)
  1. HEXADROL [Suspect]
     Active Substance: DEXAMETHASONE
     Indication: PLASMA CELL MYELOMA
     Dosage: 20/10 MG PO [CYCLES 1-4/5- 8] DAYS 1, 2, 4, 5, 8, 9, 11 , 12 FOR UP
     Route: 048
  2. ZOLINZA [Suspect]
     Active Substance: VORINOSTAT
     Indication: PLASMA CELL MYELOMA
     Dosage: DAYS 1 - 14 OF EACH CYCLE
     Route: 048
  3. LENALIDOMIDE [Suspect]
     Active Substance: LENALIDOMIDE
     Indication: PLASMA CELL MYELOMA
     Dosage: 25 MG DAYS 1- 14
  4. BORTEZOMIB [Suspect]
     Active Substance: BORTEZOMIB
     Indication: PLASMA CELL MYELOMA
     Dosage: 1.3 MG/M2 DAYS 1, 4, 8, 11

REACTIONS (1)
  - Cardio-respiratory arrest [Unknown]
